FAERS Safety Report 11959975 (Version 1)
Quarter: 2016Q1

REPORT INFORMATION
  Report Type: Spontaneous
  Country: US (occurrence: US)
  Receive Date: 20160126
  Receipt Date: 20160126
  Transmission Date: 20160526
  Serious: No
  Sender: FDA-Public Use
  Company Number: US-ABBVIE-15K-163-1360275-00

PATIENT
  Sex: Female
  Weight: 136.2 kg

DRUGS (1)
  1. HUMIRA [Suspect]
     Active Substance: ADALIMUMAB
     Indication: PSORIASIS
     Route: 065
     Dates: start: 201303, end: 2015

REACTIONS (5)
  - Skin ulcer [Not Recovered/Not Resolved]
  - Peripheral swelling [Unknown]
  - Skin ulcer [Unknown]
  - Vasculitis [Unknown]
  - Drug effect decreased [Unknown]

NARRATIVE: CASE EVENT DATE: 2015
